FAERS Safety Report 8264946-9 (Version None)
Quarter: 2012Q2

REPORT INFORMATION
  Report Type: 
  Country: None (occurrence: None)
  Receive Date: 20120404
  Receipt Date: 20120402
  Transmission Date: 20120825
  Serious: Yes (Life-Threatening, Hospitalization, Other)
  Sender: FDA-Public Use
  Company Number: ADR-2010-8874

PATIENT
  Age: 28 Year
  Sex: Male

DRUGS (3)
  1. ORAL BACLOFEN [Concomitant]
  2. VALIUM [Concomitant]
  3. LIORESAL [Suspect]
     Indication: MUSCLE SPASTICITY
     Dosage: 96 MCG, DAILY, INTRATHE
     Route: 037

REACTIONS (3)
  - INCISION SITE INFECTION [None]
  - DEVICE BREAKAGE [None]
  - MENINGITIS [None]
